FAERS Safety Report 7812135-1 (Version None)
Quarter: 2011Q4

REPORT INFORMATION
  Report Type: 
  Country: None (occurrence: None)
  Receive Date: 20111013
  Receipt Date: 20111003
  Transmission Date: 20120403
  Serious: Yes (Other)
  Sender: FDA-Public Use
  Company Number: CN-CELGENEUS-035-20785-11100640

PATIENT

DRUGS (4)
  1. ASPIRIN [Concomitant]
     Indication: THROMBOSIS PROPHYLAXIS
     Dosage: 100 MILLIGRAM
     Route: 065
  2. MELPHALAN HYDROCHLORIDE [Concomitant]
     Indication: MULTIPLE MYELOMA
     Route: 048
  3. THALIDOMIDE [Suspect]
     Indication: MULTIPLE MYELOMA
     Dosage: 100-200 MG
     Route: 048
  4. PREDNISONE [Concomitant]
     Indication: MULTIPLE MYELOMA
     Route: 048

REACTIONS (6)
  - NEUROPATHY PERIPHERAL [None]
  - SOMNOLENCE [None]
  - LEUKOPENIA [None]
  - THROMBOCYTOPENIA [None]
  - CONSTIPATION [None]
  - LIVER INJURY [None]
